FAERS Safety Report 5194631-1 (Version None)
Quarter: 2006Q4

REPORT INFORMATION
  Report Type: 
  Country: None (occurrence: None)
  Receive Date: 20061229
  Receipt Date: 20050926
  Transmission Date: 20070319
  Serious: Yes (Death, Hospitalization)
  Sender: FDA-Public Use
  Company Number: US-BAYER-200512029BWH

PATIENT
  Age: 65 Year
  Sex: Male
  Weight: 73 kg

DRUGS (9)
  1. SORAFENIB [Suspect]
     Indication: METASTATIC RENAL CELL CARCINOMA
     Dosage: TOTAL DAILY DOSE: 800 MG  UNIT DOSE: 400 MG
     Route: 048
     Dates: start: 20050830, end: 20050908
  2. SENNA [Concomitant]
     Indication: CONSTIPATION
     Route: 048
  3. NEXIUM [Concomitant]
     Indication: DYSPHAGIA
     Route: 048
  4. OXYCONTIN [Concomitant]
     Indication: PAIN
     Route: 048
     Dates: start: 20050101
  5. HYDROMORPHONE HCL [Concomitant]
     Indication: PAIN
     Dates: start: 20050101
  6. MIRALAX [Concomitant]
     Indication: CONSTIPATION
     Route: 048
     Dates: start: 20050101
  7. REGLAN [Concomitant]
     Indication: DYSPHAGIA
     Route: 048
  8. BENADRYL [Concomitant]
     Indication: SLEEP DISORDER
     Route: 048
  9. IBUPROFEN [Concomitant]
     Indication: PAIN
     Route: 048

REACTIONS (4)
  - CANCER PAIN [None]
  - DISEASE PROGRESSION [None]
  - RENAL CELL CARCINOMA STAGE UNSPECIFIED [None]
  - TACHYCARDIA [None]
